FAERS Safety Report 5269609-X (Version None)
Quarter: 2007Q1

REPORT INFORMATION
  Report Type: 
  Country: None (occurrence: None)
  Receive Date: 20061213
  Receipt Date: 20031013
  Transmission Date: 20070707
  Serious: Yes (Other)
  Sender: FDA-Public Use
  Company Number: 2003UW13229

PATIENT
  Age: 76 Year
  Sex: Male
  Weight: 86.1834 kg

DRUGS (3)
  1. IRESSA [Suspect]
  2. ARTHRITIS PILLS [Concomitant]
  3. BLOOD PRESSURE PILLS [Concomitant]

REACTIONS (3)
  - DIARRHOEA [None]
  - EPISTAXIS [None]
  - HEADACHE [None]
